FAERS Safety Report 12200972 (Version 2)
Quarter: 2016Q2

REPORT INFORMATION
  Report Type: Report from Study
  Country: None (occurrence: US)
  Receive Date: 20160322
  Receipt Date: 20160411
  Transmission Date: 20160815
  Serious: No
  Sender: FDA-Public Use
  Company Number: US-MDT-ADR-2016-00542

PATIENT
  Age: 51 Year
  Sex: Female

DRUGS (10)
  1. DILAUDID [Suspect]
     Active Substance: HYDROMORPHONE HYDROCHLORIDE
     Dosage: 2.5003 MG/DAY
     Route: 037
     Dates: start: 20140530
  2. DILAUDID [Suspect]
     Active Substance: HYDROMORPHONE HYDROCHLORIDE
     Dosage: 3.7601 MG/DAY
     Route: 037
     Dates: start: 20140720
  3. OXYCODONE ER [Suspect]
     Active Substance: OXYCODONE
  4. BUPIVACAINE. [Suspect]
     Active Substance: BUPIVACAINE
     Dosage: 15.002MG/DAY
     Route: 037
     Dates: start: 20140530
  5. OXYCODONE HYDROCHLORIDE. [Suspect]
     Active Substance: OXYCODONE HYDROCHLORIDE
  6. BUPIVACAINE. [Suspect]
     Active Substance: BUPIVACAINE
     Dosage: 22.561 MG/DAY
     Route: 037
     Dates: start: 20140720
  7. COMPOUNDED BACLOFEN [Suspect]
     Active Substance: BACLOFEN
     Dosage: 125.01MCG/DAY
     Route: 037
     Dates: start: 20140530
  8. CLONIDINE. [Suspect]
     Active Substance: CLONIDINE
     Dosage: 125.01MCG/DAY
     Route: 037
     Dates: start: 20140530
  9. CLONIDINE. [Suspect]
     Active Substance: CLONIDINE
     Dosage: 188 MCG/DAY
     Route: 037
     Dates: start: 20140720
  10. COMPOUNDED BACLOFEN [Suspect]
     Active Substance: BACLOFEN
     Dosage: 188 MCG/DAY
     Route: 037
     Dates: start: 20140720

REACTIONS (1)
  - Somnolence [Not Recovered/Not Resolved]
